APPROVED DRUG PRODUCT: TRIAMTERENE AND HYDROCHLOROTHIAZIDE
Active Ingredient: HYDROCHLOROTHIAZIDE; TRIAMTERENE
Strength: 50MG;75MG
Dosage Form/Route: TABLET;ORAL
Application: A073467 | Product #001
Applicant: ANI PHARMACEUTICALS INC
Approved: Jan 31, 1996 | RLD: No | RS: No | Type: DISCN